FAERS Safety Report 18142331 (Version 2)
Quarter: 2020Q3

REPORT INFORMATION
  Report Type: Report from Study
  Country: US (occurrence: US)
  Receive Date: 20200812
  Receipt Date: 20200826
  Transmission Date: 20201103
  Serious: Yes (Hospitalization, Other)
  Sender: FDA-Public Use
  Company Number: US-CORCEPT THERAPEUTICS INC.-US-2020CRT000923

PATIENT
  Sex: Female
  Weight: 151.2 kg

DRUGS (1)
  1. KORLYM [Suspect]
     Active Substance: MIFEPRISTONE
     Indication: CUSHING^S SYNDROME
     Dosage: 300 MG, QD
     Route: 048
     Dates: start: 20151123, end: 202001

REACTIONS (6)
  - Thrombosis [Unknown]
  - Device related infection [Unknown]
  - Breast cancer [Unknown]
  - Spinal fracture [Recovering/Resolving]
  - Rash pruritic [Unknown]
  - Post procedural infection [Unknown]

NARRATIVE: CASE EVENT DATE: 2020
